FAERS Safety Report 14604763 (Version 1)
Quarter: 2018Q1

REPORT INFORMATION
  Report Type: Spontaneous
  Country: FR (occurrence: FR)
  Receive Date: 20180306
  Receipt Date: 20180306
  Transmission Date: 20180509
  Serious: Yes (Other)
  Sender: FDA-Public Use
  Company Number: FR-GILEAD-2018-0324360

PATIENT
  Age: 55 Year
  Sex: Female

DRUGS (1)
  1. ATRIPLA [Suspect]
     Active Substance: EFAVIRENZ\EMTRICITABINE\TENOFOVIR DISOPROXIL FUMARATE
     Indication: HIV INFECTION
     Dosage: 600/200/245 MG
     Route: 048
     Dates: start: 20120115, end: 20170523

REACTIONS (2)
  - Condition aggravated [Recovered/Resolved]
  - Osteoporosis [Not Recovered/Not Resolved]
